FAERS Safety Report 10255594 (Version 1)
Quarter: 2014Q2

REPORT INFORMATION
  Report Type: Spontaneous
  Country: US (occurrence: US)
  Receive Date: 20140624
  Receipt Date: 20140624
  Transmission Date: 20141212
  Serious: No
  Sender: FDA-Public Use
  Company Number: US-B.I. PHARMACEUTICALS,INC./RIDGEFIELD-2014-BI-27446BP

PATIENT
  Age: 56 Year
  Sex: Male

DRUGS (5)
  1. PRADAXA [Suspect]
     Indication: THROMBOSIS PROPHYLAXIS
     Dosage: 300 MG
     Route: 048
     Dates: start: 201405
  2. LIPITOR [Concomitant]
     Indication: BLOOD CHOLESTEROL INCREASED
     Route: 048
  3. LISINOPRIL [Concomitant]
     Indication: HYPERTENSION
     Route: 048
  4. LOZOL [Concomitant]
     Dosage: 1.25 MG
     Route: 048
  5. ASPIRIN [Concomitant]
     Dosage: 81 MG
     Route: 048

REACTIONS (2)
  - Dyspepsia [Not Recovered/Not Resolved]
  - Off label use [Unknown]
